FAERS Safety Report 17830478 (Version 2)
Quarter: 2020Q2

REPORT INFORMATION
  Report Type: Spontaneous
  Country: MY (occurrence: MY)
  Receive Date: 20200527
  Receipt Date: 20200601
  Transmission Date: 20200714
  Serious: Yes (Other)
  Sender: FDA-Public Use
  Company Number: MY-MYLANLABS-2020M1052474

PATIENT
  Age: 67 Year
  Sex: Female

DRUGS (1)
  1. FONDAPARINUX [Suspect]
     Active Substance: FONDAPARINUX
     Indication: ANGINA UNSTABLE
     Dosage: 2.5 MILLIGRAM, QD (2.5 MG/0.5ML)
     Route: 058

REACTIONS (1)
  - Anaphylactic shock [Unknown]
